FAERS Safety Report 4280476-3 (Version None)
Quarter: 2004Q1

REPORT INFORMATION
  Report Type: 
  Country: None (occurrence: None)
  Receive Date: 20040128
  Receipt Date: 20040128
  Transmission Date: 20041129
  Serious: No
  Sender: FDA-Public Use
  Company Number: None

PATIENT
  Age: 49 Year
  Sex: Male
  Weight: 115 kg

DRUGS (1)
  1. VANCOMYCIN [Suspect]
     Indication: CELLULITIS
     Dosage: 1.25 GM IV Q 12 HR
     Route: 042
     Dates: start: 20040116, end: 20040122

REACTIONS (2)
  - DIZZINESS [None]
  - TINNITUS [None]
